FAERS Safety Report 7019717-8 (Version None)
Quarter: 2010Q3

REPORT INFORMATION
  Report Type: 
  Country: None (occurrence: None)
  Receive Date: 20100929
  Receipt Date: 20100927
  Transmission Date: 20110219
  Serious: Yes (Other)
  Sender: FDA-Public Use
  Company Number: US-SHIRE-SPV1-2010-00944

PATIENT
  Sex: Female
  Weight: 74.83 kg

DRUGS (2)
  1. CARBATROL [Suspect]
     Indication: CONVULSION
     Dosage: 300MG IN AM AND 600MG AT NIGHT
     Route: 048
  2. SUPER POLIGRIP [Suspect]
     Indication: DENTURE WEARER
     Dates: start: 19980101

REACTIONS (2)
  - BRAIN NEOPLASM [None]
  - DRUG INTERACTION [None]
